FAERS Safety Report 4797435-4 (Version None)
Quarter: 2005Q4

REPORT INFORMATION
  Report Type: 
  Country: None (occurrence: None)
  Receive Date: 20051006
  Receipt Date: 20051006
  Transmission Date: 20060501
  Serious: Yes (Hospitalization, Disabling)
  Sender: FDA-Public Use
  Company Number: None

PATIENT
  Age: 52 Year
  Sex: Male
  Weight: 81.6475 kg

DRUGS (2)
  1. LITHIUM CARBONATE [Suspect]
     Indication: BIPOLAR DISORDER
     Dosage: 1IN MORNING 2 AT NIGHT DAILY
     Dates: start: 20050612, end: 20050621
  2. LITHIUM CARBONATE [Suspect]
     Indication: BIPOLAR DISORDER
     Dosage: 1IN MORNING 2 AT NIGHT DAILY
     Dates: start: 20050911, end: 20050920

REACTIONS (7)
  - ABNORMAL BEHAVIOUR [None]
  - FAMILY STRESS [None]
  - MALAISE [None]
  - MANIA [None]
  - MENTAL DISORDER [None]
  - PHARMACEUTICAL PRODUCT COMPLAINT [None]
  - PHYSICAL ASSAULT [None]
